FAERS Safety Report 20116272 (Version 1)
Quarter: 2021Q4

REPORT INFORMATION
  Report Type: Spontaneous
  Country: GB (occurrence: GB)
  Receive Date: 20211126
  Receipt Date: 20211126
  Transmission Date: 20220303
  Serious: Yes (Other)
  Sender: FDA-Public Use
  Company Number: GB-MHRA-EYC 00266044

PATIENT
  Sex: Male

DRUGS (1)
  1. CODEINE [Suspect]
     Active Substance: CODEINE
     Indication: Hallucination, visual
     Dosage: 60MG, UNK
     Route: 048

REACTIONS (1)
  - Hallucination, visual [Recovered/Resolved]
